FAERS Safety Report 18527336 (Version 1)
Quarter: 2020Q4

REPORT INFORMATION
  Report Type: Spontaneous
  Country: KR (occurrence: KR)
  Receive Date: 20201120
  Receipt Date: 20201120
  Transmission Date: 20210114
  Serious: Yes (Other)
  Sender: FDA-Public Use
  Company Number: KR-PFIZER INC-2020454487

PATIENT
  Sex: Male

DRUGS (1)
  1. TOVIAZ [Suspect]
     Active Substance: FESOTERODINE FUMARATE
     Indication: REDUCED BLADDER CAPACITY
     Dosage: UNK
     Route: 048

REACTIONS (3)
  - Paralysis [Unknown]
  - Back injury [Unknown]
  - Off label use [Unknown]
